FAERS Safety Report 8196823-6 (Version None)
Quarter: 2012Q1

REPORT INFORMATION
  Report Type: 
  Country: None (occurrence: None)
  Receive Date: 20120227
  Receipt Date: 20111101
  Transmission Date: 20120608
  Serious: Yes (Other)
  Sender: FDA-Public Use
  Company Number: 330194

PATIENT
  Age: 42 Year
  Sex: Female
  Weight: 96.6 kg

DRUGS (5)
  1. METFORMIN HCL [Concomitant]
  2. ASPIRIN [Concomitant]
  3. VICTOZA [Suspect]
     Indication: TYPE 2 DIABETES MELLITUS
     Dosage: 1.8 MG, QD
     Dates: start: 20110201, end: 20111009
  4. QUINAPRIL HCL [Concomitant]
  5. LOVASTATIN [Concomitant]

REACTIONS (1)
  - PANCREATITIS [None]
